FAERS Safety Report 8831768 (Version 1)
Quarter: 2012Q4

REPORT INFORMATION
  Report Type: 
  Country: JP (occurrence: JP)
  Receive Date: 20121009
  Receipt Date: 20121009
  Transmission Date: 20130627
  Serious: Yes (Hospitalization)
  Sender: FDA-Public Use
  Company Number: PHHO2012JP014475

PATIENT
  Age: 64 Year
  Sex: Female
  Weight: 41 kg

DRUGS (6)
  1. TASIGNA [Suspect]
     Indication: CHRONIC MYELOID LEUKAEMIA
     Route: 048
     Dates: start: 20120821, end: 20010928
  2. LAC B [Concomitant]
     Indication: PROPHYLAXIS
     Dosage: 3 g, UNK
     Route: 048
     Dates: start: 201209
  3. METHYLCOBALAMIN [Concomitant]
     Indication: VITAMIN SUPPLEMENTATION
     Dosage: 1500 ug, UNK
     Route: 048
     Dates: start: 20110912
  4. LENDORMIN [Concomitant]
     Indication: INSOMNIA
     Dosage: 0.25 mg, UNK
     Route: 048
     Dates: start: 20120924
  5. MUCODYNE [Concomitant]
     Dosage: 1500 mg, UNK
     Route: 048
     Dates: start: 20111128, end: 20120928
  6. MUCOSTA [Concomitant]
     Indication: PROPHYLAXIS
     Dosage: 300 mg, UNK
     Route: 048
     Dates: start: 20120928, end: 20121001

REACTIONS (2)
  - Jaundice [Recovered/Resolved]
  - Liver disorder [Recovered/Resolved]
